FAERS Safety Report 6222463-1 (Version None)
Quarter: 2009Q2

REPORT INFORMATION
  Report Type: 
  Country: None (occurrence: None)
  Receive Date: 20090608
  Receipt Date: 20090526
  Transmission Date: 20091009
  Serious: Yes (Other)
  Sender: FDA-Public Use
  Company Number: US-GENENTECH-284235

PATIENT
  Age: 71 Year
  Sex: Female

DRUGS (3)
  1. AVASTIN [Suspect]
     Indication: COLORECTAL CANCER METASTATIC
     Dosage: UNK
     Route: 065
     Dates: start: 20090319
  2. ELOXATIN [Suspect]
     Indication: COLORECTAL CANCER METASTATIC
     Dosage: 150 MG, UNK
     Route: 042
     Dates: start: 20090319, end: 20090402
  3. FLUOROURACIL [Suspect]
     Indication: COLORECTAL CANCER METASTATIC
     Dosage: UNK
     Route: 065
     Dates: start: 20090319

REACTIONS (12)
  - AMNESIA [None]
  - ANGIOEDEMA [None]
  - CHEST DISCOMFORT [None]
  - DEAFNESS [None]
  - DIARRHOEA [None]
  - DYSPNOEA [None]
  - FATIGUE [None]
  - MUSCLE SPASMS [None]
  - NAUSEA [None]
  - SPEECH DISORDER [None]
  - SYNCOPE [None]
  - TEMPERATURE INTOLERANCE [None]
